FAERS Safety Report 26040670 (Version 1)
Quarter: 2025Q4

REPORT INFORMATION
  Report Type: Spontaneous
  Country: US (occurrence: None)
  Receive Date: 20251112
  Receipt Date: 20251112
  Transmission Date: 20260118
  Serious: Yes (Other)
  Sender: FDA-CTU
  Company Number: None

PATIENT
  Age: 83 Year
  Sex: Male

DRUGS (2)
  1. PIRFENIDONE [Suspect]
     Active Substance: PIRFENIDONE
     Indication: Idiopathic pulmonary fibrosis
     Dosage: FREQUENCY : TWICE A DAY;?
  2. ZEPBOUND [Suspect]
     Active Substance: TIRZEPATIDE

REACTIONS (6)
  - Fall [None]
  - Contusion [None]
  - Sleep apnoea syndrome [None]
  - Decreased appetite [None]
  - Product dose omission in error [None]
  - Fatigue [None]
